FAERS Safety Report 22384230 (Version 1)
Quarter: 2023Q2

REPORT INFORMATION
  Report Type: Spontaneous
  Country: US (occurrence: None)
  Receive Date: 20230527
  Receipt Date: 20230527
  Transmission Date: 20230722
  Serious: Yes (Hospitalization, Other)
  Sender: FDA-Public Use
  Company Number: None

PATIENT
  Age: 48 Year
  Sex: Female
  Weight: 60.75 kg

DRUGS (1)
  1. ALPRAZOLAM [Suspect]
     Active Substance: ALPRAZOLAM

REACTIONS (5)
  - Rash pruritic [None]
  - Scab [None]
  - Scar [None]
  - Crying [None]
  - Wound [None]

NARRATIVE: CASE EVENT DATE: 20230501
